FAERS Safety Report 8895302 (Version 1)
Quarter: 2012Q4

REPORT INFORMATION
  Report Type: 
  Country: JP (occurrence: JP)
  Receive Date: 20121108
  Receipt Date: 20121108
  Transmission Date: 20130627
  Serious: No
  Sender: FDA-Public Use
  Company Number: JP-009507513-1211JPN002970

PATIENT
  Age: 1 Year
  Sex: Male

DRUGS (1)
  1. ESLAX [Suspect]
     Indication: NEUROMUSCULAR BLOCKING THERAPY
     Dosage: 4 mg, qd
     Route: 042

REACTIONS (5)
  - Haemoglobinuria [Recovered/Resolved]
  - Body temperature increased [Recovered/Resolved]
  - Myoglobin blood increased [Recovered/Resolved]
  - Blood creatine phosphokinase increased [Recovered/Resolved]
  - Renal impairment [Recovered/Resolved]
